FAERS Safety Report 7023188-5 (Version None)
Quarter: 2010Q3

REPORT INFORMATION
  Report Type: 
  Country: None (occurrence: None)
  Receive Date: 20100916
  Receipt Date: 20100830
  Transmission Date: 20110219
  Serious: No
  Sender: FDA-Public Use
  Company Number: DKLU1064226

PATIENT
  Age: 49 Year
  Sex: Male

DRUGS (7)
  1. SABRIL [Suspect]
     Indication: TEMPORAL LOBE EPILEPSY
     Dosage: 1500 MG MILLIGRAM(S), 2 IN 1 D, ORAL
     Route: 048
     Dates: start: 20100715
  2. ATIVAN [Concomitant]
  3. TRILEPRICAL (TABLET) [Concomitant]
  4. LAMICTAL [Concomitant]
  5. TOPROL-XL [Concomitant]
  6. NUBAUIN (NALBUPHINE) [Concomitant]
  7. ZONEGRAN [Concomitant]

REACTIONS (4)
  - BACK PAIN [None]
  - BLOOD URINE PRESENT [None]
  - SOMNOLENCE [None]
  - STRABISMUS [None]
